FAERS Safety Report 4290952-5 (Version None)
Quarter: 2004Q1

REPORT INFORMATION
  Report Type: 
  Country: None (occurrence: None)
  Receive Date: 20040211
  Receipt Date: 20031017
  Transmission Date: 20041129
  Serious: Yes (Hospitalization, Other)
  Sender: FDA-Public Use
  Company Number: US-GLAXOSMITHKLINE-A0430697A

PATIENT
  Age: 78 Year
  Sex: Female

DRUGS (14)
  1. PAXIL [Suspect]
     Indication: DEPRESSION
     Dosage: 40MG PER DAY
     Route: 048
     Dates: end: 20031016
  2. MARINOL [Concomitant]
  3. NIFEREX [Concomitant]
  4. FOSAMAX [Concomitant]
  5. MULTI-VITAMIN [Concomitant]
  6. DESIPRAMINE HCL [Concomitant]
  7. IRON [Concomitant]
  8. CALCIUM [Concomitant]
  9. ARICEPT [Concomitant]
  10. PROMETHAZINE [Concomitant]
  11. COMPAZINE [Concomitant]
  12. PREVACID [Concomitant]
  13. DULCOLAX [Concomitant]
  14. APAP TAB [Concomitant]

REACTIONS (1)
  - DELIRIUM [None]
